FAERS Safety Report 20145556 (Version 2)
Quarter: 2021Q4

REPORT INFORMATION
  Report Type: Other
  Country: US (occurrence: None)
  Receive Date: 20211203
  Receipt Date: 20211214
  Transmission Date: 20220303
  Serious: Yes (Death)
  Sender: FDA-Public Use
  Company Number: US-ROCHE-2971828

PATIENT
  Sex: Male

DRUGS (2)
  1. RITUXAN [Suspect]
     Active Substance: RITUXIMAB
     Indication: Non-Hodgkin^s lymphoma
     Dosage: INFUSE 780MG INTRAVENOUSLY EVERY 2 MONTH(S), 10 ML VIAL
     Route: 042
  2. RITUXAN [Suspect]
     Active Substance: RITUXIMAB
     Dosage: INFUSE 780MG INTRAVENOUSLY EVERY 2 MONTH(S), 50 ML, WEEKLY FOR 4 DOSES
     Route: 042

REACTIONS (1)
  - Death [Fatal]
